FAERS Safety Report 6273728-9 (Version None)
Quarter: 2009Q3

REPORT INFORMATION
  Report Type: 
  Country: None (occurrence: None)
  Receive Date: 20090716
  Receipt Date: 20090709
  Transmission Date: 20100115
  Serious: Yes (Disabling)
  Sender: FDA-Public Use
  Company Number: ADR7142009(ARROW LOG NO: 2008AG1840)

PATIENT
  Age: 73 Year
  Sex: Male

DRUGS (6)
  1. SIMVASTATIN [Suspect]
     Indication: HYPERTENSION
     Dosage: 40 MG/DAY, ORAL
     Route: 048
     Dates: start: 20071114
  2. BUMETANIDE [Concomitant]
  3. AMLODIPINE [Concomitant]
  4. ALBYL-E (ACETYLSAIICYCLIC ACID) [Concomitant]
  5. PLAVIX [Concomitant]
  6. ATACAND HCT [Concomitant]

REACTIONS (1)
  - INTERSTITIAL LUNG DISEASE [None]
